FAERS Safety Report 11196369 (Version 5)
Quarter: 2015Q3

REPORT INFORMATION
  Report Type: Spontaneous
  Country: US (occurrence: US)
  Receive Date: 20150617
  Receipt Date: 20150810
  Transmission Date: 20151125
  Serious: Yes (Other)
  Sender: FDA-Public Use
  Company Number: US-TEVA-571338ACC

PATIENT
  Age: 35 Year
  Sex: Female
  Weight: 61.74 kg

DRUGS (3)
  1. HYDROCHLOROTHIAZIDE 12.5 MG [Concomitant]
     Active Substance: HYDROCHLOROTHIAZIDE
     Dates: start: 20050101
  2. TRAZODONE [Concomitant]
     Active Substance: TRAZODONE HYDROCHLORIDE
     Dates: start: 20110501
  3. PARAGARD T 380A [Suspect]
     Active Substance: COPPER
     Indication: CONTRACEPTION
     Route: 015
     Dates: start: 2006, end: 20150609

REACTIONS (3)
  - Device dislocation [Recovered/Resolved]
  - Embedded device [Not Recovered/Not Resolved]
  - Device breakage [Unknown]

NARRATIVE: CASE EVENT DATE: 20150604
